FAERS Safety Report 10103353 (Version 1)
Quarter: 2014Q2

REPORT INFORMATION
  Report Type: Spontaneous
  Country: US (occurrence: US)
  Receive Date: 20140424
  Receipt Date: 20140424
  Transmission Date: 20141212
  Serious: Yes (Other)
  Sender: FDA-Public Use
  Company Number: US-BRISTOL-MYERS SQUIBB COMPANY-20334777

PATIENT
  Age: 90 Year
  Sex: Female
  Weight: 68.93 kg

DRUGS (1)
  1. ELIQUIS [Suspect]
     Dates: start: 201311

REACTIONS (1)
  - Cerebrovascular accident [Unknown]
